FAERS Safety Report 6057993-9 (Version None)
Quarter: 2009Q1

REPORT INFORMATION
  Report Type: 
  Country: None (occurrence: None)
  Receive Date: 20090127
  Receipt Date: 20090116
  Transmission Date: 20090719
  Serious: Yes (Hospitalization, Other)
  Sender: FDA-Public Use
  Company Number: GXKR2009US00868

PATIENT
  Age: 28 Year
  Sex: Male
  Weight: 1 kg

DRUGS (4)
  1. CLOZAPINE [Suspect]
     Indication: SCHIZOPHRENIA
     Dosage: 400 MG
  2. RISPERIDONE [Suspect]
     Indication: SCHIZOPHRENIA
     Dosage: 6 MG
  3. VALPROATE SODIUM [Suspect]
     Indication: SCHIZOPHRENIA
     Dosage: 1000 MG
  4. ARIPIPRAZOLE [Suspect]
     Indication: SCHIZOPHRENIA
     Dosage: 30 MG

REACTIONS (16)
  - ASTHENIA [None]
  - BLOOD CREATINE PHOSPHOKINASE INCREASED [None]
  - DIARRHOEA [None]
  - DRUG INTERACTION [None]
  - DYSPHAGIA [None]
  - HYPERTENSION [None]
  - MUSCULOSKELETAL STIFFNESS [None]
  - MYOGLOBINURIA [None]
  - NEUROLEPTIC MALIGNANT SYNDROME [None]
  - PAIN [None]
  - PULMONARY EMBOLISM [None]
  - PULMONARY OEDEMA [None]
  - PYREXIA [None]
  - TACHYCARDIA [None]
  - TACHYPNOEA [None]
  - TROPONIN INCREASED [None]
